FAERS Safety Report 17737184 (Version 1)
Quarter: 2020Q2

REPORT INFORMATION
  Report Type: Spontaneous
  Country: DE (occurrence: DE)
  Receive Date: 20200502
  Receipt Date: 20200502
  Transmission Date: 20200714
  Serious: Yes (Hospitalization)
  Sender: FDA-Public Use
  Company Number: DE-TEVA-2020-DE-1229304

PATIENT
  Sex: Male

DRUGS (7)
  1. TORASEMIDE [Suspect]
     Active Substance: TORSEMIDE
     Dosage: 50 MILLIGRAM DAILY; THERAPY START DATE AND END DATE: ASKED BUT UNKNOWN
     Route: 065
  2. SPIRONOLACTONE. [Suspect]
     Active Substance: SPIRONOLACTONE
     Dosage: 25 MG, THERAPY START DATE AND END DATE: ASKED BUT UNKNOWN
     Route: 065
  3. TORASEMIDE [Suspect]
     Active Substance: TORSEMIDE
     Dosage: 30 MILLIGRAM DAILY; THERAPY START DATE AND END DATE: ASKED BUT UNKNOWN
     Route: 065
  4. CARVEDILOL. [Suspect]
     Active Substance: CARVEDILOL
     Indication: PRODUCT USED FOR UNKNOWN INDICATION
     Dosage: 12.5 MG, THERAPY START DATE AND END DATE: ASKED BUT UNKNOWN
     Route: 065
  5. SPIRONOLACTONE. [Suspect]
     Active Substance: SPIRONOLACTONE
     Indication: PRODUCT USED FOR UNKNOWN INDICATION
     Dosage: 25 MG (3 DF PER WEEK), THERAPY START DATE AND END DATE: ASKED BUT UNKNOWN
     Route: 065
  6. TORASEMIDE [Suspect]
     Active Substance: TORSEMIDE
     Indication: PRODUCT USED FOR UNKNOWN INDICATION
     Dosage: 5 MG (2-1-0), THERAPY START DATE AND END DATE: ASKED BUT UNKNOWN
     Route: 065
  7. CANDESARTAN. [Suspect]
     Active Substance: CANDESARTAN
     Indication: PRODUCT USED FOR UNKNOWN INDICATION
     Dosage: 2 DF, THERAPY START DATE AND END DATE: ASKED BUT UNKNOWN
     Route: 065

REACTIONS (5)
  - Blood potassium abnormal [Unknown]
  - Cardiac failure [Recovered/Resolved]
  - Bronchitis [Recovered/Resolved]
  - Weight increased [Recovered/Resolved]
  - Infection [Unknown]
